FAERS Safety Report 5611913-7 (Version None)
Quarter: 2008Q1

REPORT INFORMATION
  Report Type: 
  Country: None (occurrence: None)
  Receive Date: 20080131
  Receipt Date: 20080131
  Transmission Date: 20080703
  Serious: Yes (Life-Threatening)
  Sender: FDA-Public Use
  Company Number: None

PATIENT
  Age: 26 Year
  Sex: Female
  Weight: 39.4629 kg

DRUGS (8)
  1. GUAIFEN PSE 400-120 [Suspect]
     Indication: COUGH
     Dosage: ONE CAPSULE TWICE A DAY PO
     Route: 048
     Dates: start: 20080128, end: 20080129
  2. GUAIFEN PSE 400-120 [Suspect]
     Indication: NAUSEA
     Dosage: ONE CAPSULE TWICE A DAY PO
     Route: 048
     Dates: start: 20080128, end: 20080129
  3. GUAIFEN PSE 400-120 [Suspect]
     Indication: PYREXIA
     Dosage: ONE CAPSULE TWICE A DAY PO
     Route: 048
     Dates: start: 20080128, end: 20080129
  4. GUAIFEN PSE 400-120 [Suspect]
     Indication: RESPIRATORY DISORDER
     Dosage: ONE CAPSULE TWICE A DAY PO
     Route: 048
     Dates: start: 20080128, end: 20080129
  5. PROMETHAZINE DM [Suspect]
     Indication: COUGH
     Dosage: ONE TEASPOON FOUR TIMES DAILY PO
     Route: 048
     Dates: start: 20080128, end: 20080129
  6. PROMETHAZINE DM [Suspect]
     Indication: NAUSEA
     Dosage: ONE TEASPOON FOUR TIMES DAILY PO
     Route: 048
     Dates: start: 20080128, end: 20080129
  7. PROMETHAZINE DM [Suspect]
     Indication: PYREXIA
     Dosage: ONE TEASPOON FOUR TIMES DAILY PO
     Route: 048
     Dates: start: 20080128, end: 20080129
  8. PROMETHAZINE DM [Suspect]
     Indication: RESPIRATORY DISORDER
     Dosage: ONE TEASPOON FOUR TIMES DAILY PO
     Route: 048
     Dates: start: 20080128, end: 20080129

REACTIONS (4)
  - DIZZINESS [None]
  - HEADACHE [None]
  - HEART RATE INCREASED [None]
  - NAUSEA [None]
